FAERS Safety Report 18304906 (Version 1)
Quarter: 2020Q3

REPORT INFORMATION
  Report Type: Spontaneous
  Country: US (occurrence: US)
  Receive Date: 20200923
  Receipt Date: 20200923
  Transmission Date: 20201103
  Serious: No
  Sender: FDA-Public Use
  Company Number: None

PATIENT
  Age: 78 Year
  Sex: Male

DRUGS (2)
  1. PIPERACILLIN/TAZOBACTAM (PIPERACILLIN NA 2GM/TAZOBACTAM 0.25ML INJ, BA [Suspect]
     Active Substance: PIPERACILLIN SODIUM\TAZOBACTAM SODIUM
     Dates: start: 20200702, end: 20200708
  2. ERTAPENEM (ERTAPENEM 1GM/VIL INJ) [Suspect]
     Active Substance: ERTAPENEM
     Indication: CELLULITIS
     Route: 042
     Dates: start: 20200708, end: 20200723

REACTIONS (8)
  - Erythema multiforme [None]
  - Leukocytosis [None]
  - Blood creatinine increased [None]
  - Pruritus [None]
  - Rash [None]
  - Blood urea increased [None]
  - Urticaria [None]
  - Hepatic enzyme increased [None]

NARRATIVE: CASE EVENT DATE: 20200724
